FAERS Safety Report 13109624 (Version 1)
Quarter: 2017Q1

REPORT INFORMATION
  Report Type: Spontaneous
  Country: FR (occurrence: FR)
  Receive Date: 20170112
  Receipt Date: 20170112
  Transmission Date: 20170428
  Serious: Yes (Other)
  Sender: FDA-Public Use
  Company Number: FR-ASTRAZENECA-2017SE02001

PATIENT
  Age: 65 Year
  Sex: Male

DRUGS (7)
  1. AMLODIPINE [Concomitant]
     Active Substance: AMLODIPINE BESYLATE
     Dates: start: 2013
  2. NATISPRAY [Concomitant]
     Active Substance: NITROGLYCERIN
     Dates: start: 2013
  3. DOLIPRANE [Concomitant]
     Active Substance: ACETAMINOPHEN
  4. CRESTOR [Suspect]
     Active Substance: ROSUVASTATIN CALCIUM
     Indication: INFARCTION
     Route: 048
     Dates: start: 2013, end: 20161110
  5. KARDEGIC [Concomitant]
     Active Substance: ASPIRIN LYSINE
     Dates: start: 2013
  6. VENTOLINE [Concomitant]
     Active Substance: ALBUTEROL
  7. LEXOMIL [Concomitant]
     Active Substance: BROMAZEPAM

REACTIONS (19)
  - Irritability [Recovered/Resolved]
  - Balance disorder [Unknown]
  - Joint injury [Recovered/Resolved]
  - Insomnia [Recovered/Resolved]
  - Erectile dysfunction [Recovered/Resolved]
  - Syncope [Recovered/Resolved]
  - Ischaemic stroke [Recovered/Resolved]
  - Myalgia [Recovered/Resolved]
  - Confusional state [Recovered/Resolved]
  - Dry skin [Recovered/Resolved]
  - Fall [Recovered/Resolved]
  - Hypotonia [Recovered/Resolved]
  - Oedema peripheral [Recovered/Resolved]
  - Memory impairment [Recovered/Resolved]
  - Skin lesion [Recovering/Resolving]
  - Arthralgia [Recovered/Resolved]
  - Depression [Recovered/Resolved]
  - Dyspnoea [Recovered/Resolved]
  - Visual acuity reduced [Recovered/Resolved]

NARRATIVE: CASE EVENT DATE: 2013
